FAERS Safety Report 22635875 (Version 1)
Quarter: 2023Q2

REPORT INFORMATION
  Report Type: Spontaneous
  Country: CN (occurrence: None)
  Receive Date: 20230623
  Receipt Date: 20230623
  Transmission Date: 20230722
  Serious: Yes (Other)
  Sender: FDA-Public Use
  Company Number: 2023A143204

PATIENT
  Age: 63 Year
  Sex: Male

DRUGS (3)
  1. DURVALUMAB [Suspect]
     Active Substance: DURVALUMAB
     Indication: Non-small cell lung cancer
     Dosage: 620 MG
  2. PACLITAXEL [Suspect]
     Active Substance: PACLITAXEL
     Indication: Non-small cell lung cancer
     Dosage: 260 MG/M^2, 400 MG
  3. CISPLATIN [Suspect]
     Active Substance: CISPLATIN
     Indication: Non-small cell lung cancer
     Dosage: 75 MG/M^2 (TOTAL QUANTITY SCORE: 3 DAYS), 40 MG, IVGTT, D1-3, Q3W.

REACTIONS (5)
  - Myelosuppression [Unknown]
  - Dyspepsia [Unknown]
  - Pruritus [Unknown]
  - Pain in extremity [Unknown]
  - Peripheral swelling [Unknown]
